FAERS Safety Report 8359790-8 (Version None)
Quarter: 2012Q2

REPORT INFORMATION
  Report Type: 
  Country: None (occurrence: None)
  Receive Date: 20120515
  Receipt Date: 20120508
  Transmission Date: 20120825
  Serious: Yes (Other)
  Sender: FDA-Public Use
  Company Number: PHHY2012BR040587

PATIENT
  Sex: Male

DRUGS (5)
  1. DIOVAN HCT [Suspect]
     Dosage: (160/25 MG), UNK
  2. GALVUS MET [Suspect]
     Dosage: (1000/50 MG), UNK
  3. DIOVAN HCT [Suspect]
     Dosage: (160/12.5 MG), UNK
  4. DIOVAN HCT [Suspect]
     Dosage: (320/25 MG), UNK
  5. DIOVAN HCT [Suspect]
     Dosage: (320/12.5 MG), UNK

REACTIONS (1)
  - ROAD TRAFFIC ACCIDENT [None]
